FAERS Safety Report 24303328 (Version 1)
Quarter: 2024Q3

REPORT INFORMATION
  Report Type: Report from Study
  Country: US (occurrence: US)
  Receive Date: 20240910
  Receipt Date: 20240910
  Transmission Date: 20241017
  Serious: Yes (Other)
  Sender: CIPLA
  Company Number: US-CIPLA LTD.-2024US09755

PATIENT

DRUGS (1)
  1. ANASTROZOLE [Suspect]
     Active Substance: ANASTROZOLE
     Indication: HER2 negative breast cancer
     Dosage: 1 MILLIGRAM, QD (1 MG ONCE DAILY) (CYCLE 1: ANA1) FOR ABOUT 8-10 WEEKS
     Route: 048

REACTIONS (9)
  - Drug ineffective [Unknown]
  - Hot flush [Unknown]
  - Arthralgia [Unknown]
  - Alopecia [Unknown]
  - Diarrhoea [Unknown]
  - Fatigue [Unknown]
  - Malaise [Unknown]
  - Nausea [Unknown]
  - White blood cell count decreased [Unknown]
